FAERS Safety Report 5252059-X (Version None)
Quarter: 2007Q1

REPORT INFORMATION
  Report Type: 
  Country: None (occurrence: None)
  Receive Date: 20070226
  Receipt Date: 20070214
  Transmission Date: 20070707
  Serious: Yes (Other)
  Sender: FDA-Public Use
  Company Number: VNL_0428_2007

PATIENT
  Sex: Male

DRUGS (3)
  1. APO-GO [Suspect]
     Indication: PARKINSON'S DISEASE
     Dosage: 5 MG/HR CON SC
     Route: 058
     Dates: start: 20060101, end: 20060101
  2. APO-GO [Suspect]
     Indication: PARKINSON'S DISEASE
     Dosage: 1.5 MG/HR CON SC
     Route: 058
     Dates: end: 20060101
  3. LOTS OF OTHER MEDICATION FOR PARKINSON'S DISEASE [Concomitant]

REACTIONS (3)
  - AGITATION [None]
  - HALLUCINATION [None]
  - OVERDOSE [None]
